FAERS Safety Report 12421542 (Version 1)
Quarter: 2016Q2

REPORT INFORMATION
  Report Type: Spontaneous
  Country: FR (occurrence: FR)
  Receive Date: 20160531
  Receipt Date: 20160531
  Transmission Date: 20160815
  Serious: Yes (Death)
  Sender: FDA-Public Use
  Company Number: FR-SA-2016SA100043

PATIENT
  Sex: Male

DRUGS (3)
  1. APROVEL [Suspect]
     Active Substance: IRBESARTAN
     Indication: OVERDOSE
     Route: 065
  2. BACLOFEN. [Suspect]
     Active Substance: BACLOFEN
     Indication: OVERDOSE
     Route: 065
  3. SERTRALINE [Suspect]
     Active Substance: SERTRALINE HYDROCHLORIDE
     Indication: OVERDOSE
     Route: 065

REACTIONS (2)
  - Death [Fatal]
  - Mania [Unknown]
